FAERS Safety Report 7008387-0 (Version None)
Quarter: 2010Q3

REPORT INFORMATION
  Report Type: 
  Country: None (occurrence: None)
  Receive Date: 20100922
  Receipt Date: 20100914
  Transmission Date: 20110219
  Serious: Yes (Death, Hospitalization)
  Sender: FDA-Public Use
  Company Number: B0642872C

PATIENT
  Sex: Female
  Weight: 56.6 kg

DRUGS (2)
  1. LAPATINIB [Suspect]
     Dosage: 750MG PER DAY
     Route: 048
     Dates: start: 20100312, end: 20100521
  2. PACLITAXEL [Suspect]
     Dosage: 105MG WEEKLY
     Route: 042
     Dates: start: 20100312, end: 20100528

REACTIONS (6)
  - CARDIAC FAILURE CONGESTIVE [None]
  - DIARRHOEA [None]
  - PULMONARY OEDEMA [None]
  - RESPIRATORY ARREST [None]
  - SEPSIS [None]
  - VOMITING [None]
